FAERS Safety Report 15942542 (Version 1)
Quarter: 2019Q1

REPORT INFORMATION
  Report Type: Spontaneous
  Country: US (occurrence: US)
  Receive Date: 20190209
  Receipt Date: 20190209
  Transmission Date: 20190417
  Serious: No
  Sender: FDA-Public Use
  Company Number: US-TEVA-2019-US-999545

PATIENT
  Age: 35 Year
  Sex: Female

DRUGS (2)
  1. MICONAZOLE NITRATE 2% CREAM ANTIFUNGAL [Suspect]
     Active Substance: MICONAZOLE NITRATE
     Route: 065
     Dates: start: 2014
  2. MICONAZOLE NITRATE 2% CREAM ANTIFUNGAL [Suspect]
     Active Substance: MICONAZOLE NITRATE
     Indication: VAGINAL INFECTION
     Route: 065
     Dates: start: 20181215

REACTIONS (1)
  - Drug ineffective [Unknown]

NARRATIVE: CASE EVENT DATE: 201812
